FAERS Safety Report 5337936-3 (Version None)
Quarter: 2007Q2

REPORT INFORMATION
  Report Type: 
  Country: None (occurrence: None)
  Receive Date: 20070327
  Receipt Date: 20070116
  Transmission Date: 20071010
  Serious: No
  Sender: FDA-Public Use
  Company Number: 222148

PATIENT
  Age: 51 Year
  Sex: Female

DRUGS (2)
  1. AVASTIN [Suspect]
     Indication: COLON CANCER
     Dates: start: 20060130
  2. CAPECITABINE (CAPECITABINE) [Concomitant]

REACTIONS (1)
  - INTERNATIONAL NORMALISED RATIO INCREASED [None]
